FAERS Safety Report 8230710-X (Version None)
Quarter: 2012Q1

REPORT INFORMATION
  Report Type: 
  Country: None (occurrence: None)
  Receive Date: 20120323
  Receipt Date: 20120314
  Transmission Date: 20120608
  Serious: Yes (Death, Other)
  Sender: FDA-Public Use
  Company Number: PHHY2012JP019705

PATIENT
  Age: 10 Day

DRUGS (1)
  1. HYDRALAZINE HYDROCHLORIDE [Suspect]
     Route: 064

REACTIONS (5)
  - FOETAL GROWTH RESTRICTION [None]
  - FOETAL EXPOSURE DURING PREGNANCY [None]
  - SEPSIS NEONATAL [None]
  - PREMATURE BABY [None]
  - LOW BIRTH WEIGHT BABY [None]
